FAERS Safety Report 12239054 (Version 5)
Quarter: 2016Q3

REPORT INFORMATION
  Report Type: Spontaneous
  Country: US (occurrence: US)
  Receive Date: 20160405
  Receipt Date: 20160805
  Transmission Date: 20161109
  Serious: Yes (Other)
  Sender: FDA-Public Use
  Company Number: US-ACTELION PHARMACEUTICALS US, INC.-A-US2016-133837

PATIENT
  Age: 62 Year
  Sex: Female

DRUGS (21)
  1. UPTRAVI [Suspect]
     Active Substance: SELEXIPAG
     Dosage: 1000 MCG, BID
     Route: 048
     Dates: start: 20160415
  2. UPTRAVI [Suspect]
     Active Substance: SELEXIPAG
     Dosage: 600 MCG, BID
     Route: 048
     Dates: end: 20160320
  3. ESTRACE [Concomitant]
     Active Substance: ESTRADIOL
  4. UPTRAVI [Suspect]
     Active Substance: SELEXIPAG
     Dosage: 800 MCG, BID
     Route: 048
     Dates: end: 20160711
  5. ASPIRIN. [Concomitant]
     Active Substance: ASPIRIN
  6. PRILOSEC [Concomitant]
     Active Substance: OMEPRAZOLE MAGNESIUM
  7. SYNTHROID [Concomitant]
     Active Substance: LEVOTHYROXINE SODIUM
  8. IRON [Concomitant]
     Active Substance: IRON
  9. VITAMIN D [Concomitant]
     Active Substance: CHOLECALCIFEROL
  10. LOSEC [Concomitant]
     Active Substance: OMEPRAZOLE
  11. AMBRISENTAN [Suspect]
     Active Substance: AMBRISENTAN
     Indication: PULMONARY HYPERTENSION
     Dosage: 10 MG, QD
     Route: 048
     Dates: start: 20110511
  12. ADCIRCA [Suspect]
     Active Substance: TADALAFIL
     Indication: PRODUCT USED FOR UNKNOWN INDICATION
     Dosage: 40 MG, QD
     Route: 065
  13. SILDENAFIL. [Concomitant]
     Active Substance: SILDENAFIL
  14. REVATIO [Concomitant]
     Active Substance: SILDENAFIL CITRATE
  15. IBUPROFEN. [Concomitant]
     Active Substance: IBUPROFEN
  16. UPTRAVI [Suspect]
     Active Substance: SELEXIPAG
     Indication: PULMONARY HYPERTENSION
     Dosage: 800 MCG, BID
     Route: 048
     Dates: start: 20160321
  17. METFORMIN [Concomitant]
     Active Substance: METFORMIN HYDROCHLORIDE
  18. TYVASO [Suspect]
     Active Substance: TREPROSTINIL
     Indication: PRODUCT USED FOR UNKNOWN INDICATION
     Route: 065
  19. POTASSIUM [Concomitant]
     Active Substance: POTASSIUM
  20. MAGNESIUM [Concomitant]
     Active Substance: MAGNESIUM
  21. FUROSEMIDE. [Concomitant]
     Active Substance: FUROSEMIDE

REACTIONS (21)
  - Pain in extremity [Unknown]
  - Pain [Not Recovered/Not Resolved]
  - Malaise [Unknown]
  - Systemic scleroderma [Not Recovered/Not Resolved]
  - Sluggishness [Unknown]
  - Fatigue [Unknown]
  - Myalgia [Unknown]
  - Poor quality sleep [Unknown]
  - Weight increased [Unknown]
  - Insomnia [Unknown]
  - Pain in jaw [Not Recovered/Not Resolved]
  - Decreased appetite [Unknown]
  - Vomiting [Unknown]
  - Nausea [Not Recovered/Not Resolved]
  - Walking disability [Unknown]
  - Ear pain [Unknown]
  - Cold-stimulus headache [Unknown]
  - Diarrhoea [Not Recovered/Not Resolved]
  - Limb discomfort [Unknown]
  - Muscle spasms [Recovered/Resolved]
  - Headache [Unknown]

NARRATIVE: CASE EVENT DATE: 20160321
